FAERS Safety Report 18952459 (Version 1)
Quarter: 2021Q1

REPORT INFORMATION
  Report Type: Spontaneous
  Country: US (occurrence: US)
  Receive Date: 20210301
  Receipt Date: 20210301
  Transmission Date: 20210420
  Serious: Yes (Other)
  Sender: FDA-Public Use
  Company Number: US-CADILA HEALTHCARE LIMITED-US-ZYDUS-062360

PATIENT

DRUGS (26)
  1. WARFARIN SODIUM. [Interacting]
     Active Substance: WARFARIN SODIUM
     Dosage: 7.5 MILLIGRAM, QOD
     Route: 065
  2. DRONABINOL. [Interacting]
     Active Substance: DRONABINOL
     Dosage: 12.3 MILLIGRAM, QD
     Route: 060
  3. CANNABIDIOL [Concomitant]
     Active Substance: CANNABIDIOL
     Dosage: 1.0 ML ADMINISTERED 3 TIMES A DAY, EQUIVALENT TO A DOSE OF 0.30 MG CBD PER DAY
     Route: 060
  4. FLUOXETINE [Concomitant]
     Active Substance: FLUOXETINE HYDROCHLORIDE
     Indication: PRODUCT USED FOR UNKNOWN INDICATION
     Dosage: 20 MILLIGRAM, BID
  5. DOCUSATE [Concomitant]
     Active Substance: DOCUSATE
     Indication: PRODUCT USED FOR UNKNOWN INDICATION
     Dosage: 100 MILLIGRAM (UP TO 3 TIMES DAILY)
  6. DRONABINOL. [Interacting]
     Active Substance: DRONABINOL
     Dosage: 1.0 ML ADMINISTERED 3 TIMES A DAY, EQUIVALENT TO A DOSE OF 14.7 MG THC
     Route: 060
  7. DRONABINOL. [Interacting]
     Active Substance: DRONABINOL
     Dosage: 7.35 MILLIGRAM, QD
     Route: 060
  8. CANNABIDIOL [Concomitant]
     Active Substance: CANNABIDIOL
     Dosage: 10.3 MILLIGRAM, QD
     Route: 060
  9. ATENOLOL. [Concomitant]
     Active Substance: ATENOLOL
     Indication: PRODUCT USED FOR UNKNOWN INDICATION
     Dosage: 50 MILLIGRAM, QD
  10. DRONABINOL. [Interacting]
     Active Substance: DRONABINOL
     Dosage: 4.9 MG THC PER ML (0.5 ML 3 TIMES PER DAY, FOR A TOTAL DAILY DOSE OF 7.35 MG THC)
     Route: 060
  11. LISINOPRIL. [Concomitant]
     Active Substance: LISINOPRIL
     Indication: PRODUCT USED FOR UNKNOWN INDICATION
     Dosage: 20 MILLIGRAM, QD
  12. WARFARIN SODIUM. [Interacting]
     Active Substance: WARFARIN SODIUM
     Dosage: 28 PERCENT?29 PERCENT WEEKLY DOSE REDUCTION
     Route: 065
  13. CANNABIDIOL [Concomitant]
     Active Substance: CANNABIDIOL
     Dosage: 0.1 MG CBD PER ML, 0.5 ML 3 TIMES PER DAY, FOR A TOTAL DAILY DOSE OF 0.15 MG CBD
     Route: 060
  14. NORTRIPTYLINE [Concomitant]
     Active Substance: NORTRIPTYLINE
     Indication: PRODUCT USED FOR UNKNOWN INDICATION
     Dosage: 75 MILLIGRAM, QD
  15. ATORVASTATIN [Concomitant]
     Active Substance: ATORVASTATIN
     Indication: PRODUCT USED FOR UNKNOWN INDICATION
     Dosage: 40 MILLIGRAM, QD
  16. FAMOTIDINE. [Concomitant]
     Active Substance: FAMOTIDINE
     Indication: PRODUCT USED FOR UNKNOWN INDICATION
     Dosage: 20 MILLIGRAM, BID
  17. IBUPROFEN. [Concomitant]
     Active Substance: IBUPROFEN
     Indication: ARTHRALGIA
     Dosage: 200 MILLIGRAM, PRN
  18. DRONABINOL. [Interacting]
     Active Substance: DRONABINOL
     Indication: PAIN
     Dosage: 5 MG PER ML (1 ML TWICE DAILY)
     Route: 060
  19. CANNABIDIOL [Concomitant]
     Active Substance: CANNABIDIOL
     Indication: PAIN
     Dosage: 1 ML TWICE DAILY FOR A TOTAL DAILY
     Route: 060
  20. CANNABIDIOL [Concomitant]
     Active Substance: CANNABIDIOL
     Dosage: 1.0 ML ADMINISTERED 3 TIMES A DAY, EQUIVALENT TO A DOSE OF 0.30 MG CBD PER DAY
     Route: 060
  21. WARFARIN SODIUM. [Suspect]
     Active Substance: WARFARIN SODIUM
     Indication: THROMBOSIS PROPHYLAXIS
     Dosage: 6 MILLIGRAM
     Route: 065
  22. METFORMIN [Concomitant]
     Active Substance: METFORMIN HYDROCHLORIDE
     Indication: PRODUCT USED FOR UNKNOWN INDICATION
     Dosage: 850 MILLIGRAM, BID
  23. OMEPRAZOLE. [Concomitant]
     Active Substance: OMEPRAZOLE
     Indication: PRODUCT USED FOR UNKNOWN INDICATION
     Dosage: 20 MILLIGRAM, QD
  24. ASPIRIN [ACETYLSALICYLIC ACID] [Concomitant]
     Active Substance: ASPIRIN
     Indication: PRODUCT USED FOR UNKNOWN INDICATION
     Dosage: 81 MILLIGRAM, QD
  25. GLIPIZIDE. [Concomitant]
     Active Substance: GLIPIZIDE
     Indication: PRODUCT USED FOR UNKNOWN INDICATION
     Dosage: 10 MILLIGRAM, BID
  26. VITAMIN E NOS [Concomitant]
     Active Substance: .ALPHA.-TOCOPHEROL
     Indication: SUPPLEMENTATION THERAPY
     Dosage: UNK

REACTIONS (4)
  - Dry mouth [Unknown]
  - International normalised ratio increased [Recovered/Resolved]
  - Drug interaction [Unknown]
  - Dizziness [Unknown]
